FAERS Safety Report 8310647-8 (Version None)
Quarter: 2012Q2

REPORT INFORMATION
  Report Type: 
  Country: None (occurrence: None)
  Receive Date: 20120425
  Receipt Date: 20120418
  Transmission Date: 20120825
  Serious: Yes (Other)
  Sender: FDA-Public Use
  Company Number: US-ROCHE-1060753

PATIENT
  Sex: Male

DRUGS (1)
  1. ACCUTANE [Suspect]
     Indication: PRODUCT USED FOR UNKNOWN INDICATION
     Dates: start: 20030101

REACTIONS (2)
  - GASTROINTESTINAL DISORDER [None]
  - EMOTIONAL DISTRESS [None]
